FAERS Safety Report 11214941 (Version 2)
Quarter: 2015Q2

REPORT INFORMATION
  Report Type: Spontaneous
  Country: FR (occurrence: FR)
  Receive Date: 20150624
  Receipt Date: 20150626
  Transmission Date: 20150821
  Serious: Yes (Hospitalization, Other)
  Sender: FDA-Public Use
  Company Number: FR-009507513-1506FRA008975

PATIENT
  Age: 38 Year
  Sex: Female
  Weight: 63 kg

DRUGS (2)
  1. IMPLANON [Suspect]
     Active Substance: ETONOGESTREL
     Indication: CONTRACEPTION
     Dosage: UNK
     Route: 059
     Dates: start: 2011
  2. NEXPLANON [Suspect]
     Active Substance: ETONOGESTREL
     Indication: CONTRACEPTION
     Dosage: UNK
     Route: 059
     Dates: start: 20150522

REACTIONS (27)
  - Abortion induced [Recovered/Resolved]
  - Device difficult to use [Not Recovered/Not Resolved]
  - Surgery [Unknown]
  - Paraesthesia [Unknown]
  - Migraine [Unknown]
  - Medical device complication [Not Recovered/Not Resolved]
  - Pain in extremity [Unknown]
  - Chest discomfort [Unknown]
  - Unintended pregnancy [Recovered/Resolved]
  - Pregnancy with implant contraceptive [Recovered/Resolved]
  - Localised infection [Not Recovered/Not Resolved]
  - Joint ankylosis [Unknown]
  - Scar [Unknown]
  - Abscess [Unknown]
  - Medical device complication [Not Recovered/Not Resolved]
  - Sensory loss [Not Recovered/Not Resolved]
  - Libido increased [Unknown]
  - General anaesthesia [Recovered/Resolved]
  - Device difficult to use [Not Recovered/Not Resolved]
  - Influenza [Unknown]
  - Overdose [Unknown]
  - Musculoskeletal stiffness [Unknown]
  - Pyrexia [Unknown]
  - Device dislocation [Not Recovered/Not Resolved]
  - Skin discolouration [Unknown]
  - Incorrect drug administration duration [Unknown]
  - General anaesthesia [Recovered/Resolved]

NARRATIVE: CASE EVENT DATE: 2014
